FAERS Safety Report 7939305-6 (Version None)
Quarter: 2011Q4

REPORT INFORMATION
  Report Type: 
  Country: None (occurrence: None)
  Receive Date: 20111125
  Receipt Date: 20110330
  Transmission Date: 20120403
  Serious: No
  Sender: FDA-Public Use
  Company Number: US-BAYER-2011-048634

PATIENT
  Sex: Male

DRUGS (3)
  1. SARGRAMOSTIM [Suspect]
     Indication: RECTAL CANCER
     Dosage: UNK
     Route: 058
     Dates: start: 20110331
  2. SARGRAMOSTIM [Suspect]
     Indication: COLON CANCER
     Dosage: UNK
     Route: 058
     Dates: start: 20110330
  3. SARGRAMOSTIM [Suspect]
     Indication: BLADDER CANCER
     Dosage: UNK
     Route: 058
     Dates: start: 20110401

REACTIONS (1)
  - CHILLS [None]
